FAERS Safety Report 11880145 (Version 3)
Quarter: 2016Q2

REPORT INFORMATION
  Report Type: Spontaneous
  Country: IL (occurrence: IL)
  Receive Date: 20151230
  Receipt Date: 20160420
  Transmission Date: 20160815
  Serious: Yes (Hospitalization, Other)
  Sender: FDA-Public Use
  Company Number: IL-SHIRE-IL201516852

PATIENT
  Age: 45 Year
  Sex: Male

DRUGS (1)
  1. VPRIV [Suspect]
     Active Substance: VELAGLUCERASE ALFA
     Indication: GAUCHER^S DISEASE
     Dosage: 2400 IU, UNKNOWN (PER MONTH)
     Route: 041
     Dates: start: 201510

REACTIONS (4)
  - Fear [Unknown]
  - Malaise [Unknown]
  - Rash [Unknown]
  - Epilepsy [Unknown]

NARRATIVE: CASE EVENT DATE: 20151222
